FAERS Safety Report 5584680-3 (Version None)
Quarter: 2008Q1

REPORT INFORMATION
  Report Type: 
  Country: None (occurrence: None)
  Receive Date: 20080103
  Receipt Date: 20071218
  Transmission Date: 20080703
  Serious: Yes (Life-Threatening, Hospitalization, Other)
  Sender: FDA-Public Use
  Company Number: 2007US003201

PATIENT
  Age: 58 Year
  Sex: Female

DRUGS (9)
  1. AMBISOME [Suspect]
     Indication: LUNG DISORDER
     Dosage: IV NOS
     Route: 042
     Dates: start: 20071107, end: 20071113
  2. HERCEPTIN [Concomitant]
  3. ARIMIDEX [Concomitant]
  4. PERINDOPRIL ERBUMINE [Concomitant]
  5. ATARAX [Concomitant]
  6. HYDROCORTISONE [Concomitant]
  7. VFEND [Concomitant]
  8. CIFLOX (CIPROFLOXACIN HYDROCHLORIDE) [Concomitant]
  9. IMIPENEM AND CILASTATIN SODIUM [Concomitant]

REACTIONS (3)
  - BLOOD POTASSIUM INCREASED [None]
  - CARDIAC ARREST [None]
  - RESPIRATORY ARREST [None]
